FAERS Safety Report 7237795-8 (Version None)
Quarter: 2011Q1

REPORT INFORMATION
  Report Type: 
  Country: None (occurrence: None)
  Receive Date: 20110121
  Receipt Date: 20110112
  Transmission Date: 20110831
  Serious: Yes (Hospitalization, Other)
  Sender: FDA-Public Use
  Company Number: US-ROCHE-748622

PATIENT
  Sex: Female
  Weight: 62.6 kg

DRUGS (5)
  1. CAPECITABINE [Suspect]
     Dosage: QD
     Route: 048
     Dates: start: 20101110, end: 20101123
  2. LYRICA [Concomitant]
     Indication: NEUROPATHY PERIPHERAL
     Route: 048
     Dates: start: 20100608
  3. AMLODIPINE [Concomitant]
     Dosage: DRUG REPORTED AS AMLOPIDINE
  4. ACTOS [Concomitant]
  5. METOPROLOL TARTRATE [Concomitant]
     Indication: HYPERTENSION
     Dosage: DRUG REPORTED AS METROPROLOL
     Route: 048
     Dates: start: 20100128

REACTIONS (11)
  - RENAL FAILURE ACUTE [None]
  - NAUSEA [None]
  - DIARRHOEA [None]
  - HYPERCALCAEMIA [None]
  - STAPHYLOCOCCAL SEPSIS [None]
  - NORMOCHROMIC NORMOCYTIC ANAEMIA [None]
  - OCCULT BLOOD POSITIVE [None]
  - HYPOTENSION [None]
  - VOMITING [None]
  - BLOOD ELECTROLYTES ABNORMAL [None]
  - DEHYDRATION [None]
